FAERS Safety Report 20156982 (Version 1)
Quarter: 2021Q4

REPORT INFORMATION
  Report Type: Spontaneous
  Country: US (occurrence: US)
  Receive Date: 20211207
  Receipt Date: 20211207
  Transmission Date: 20220303
  Serious: Yes (Death, Life-Threatening, Hospitalization, Other)
  Sender: FDA-Public Use
  Company Number: US-SA-2021SA403637

PATIENT
  Age: 56 Year
  Sex: Female

DRUGS (8)
  1. PREDNISONE [Suspect]
     Active Substance: PREDNISONE
     Indication: Hepatitis chronic active
     Dosage: 5 MG DAILY
     Dates: start: 1968
  2. PREDNISONE [Suspect]
     Active Substance: PREDNISONE
     Indication: Hepatic cirrhosis
     Dosage: UNK
     Dates: start: 1977
  3. HYDROCORTISONE [Suspect]
     Active Substance: HYDROCORTISONE
     Indication: Hepatitis chronic active
     Dosage: 200 MG, Q4H
     Route: 042
     Dates: start: 1977
  4. HYDROCORTISONE [Suspect]
     Active Substance: HYDROCORTISONE
     Indication: Hepatic cirrhosis
  5. NEOMYCIN [Concomitant]
     Active Substance: NEOMYCIN
     Indication: Hepatitis chronic active
     Dosage: UNK
     Dates: start: 1977
  6. NEOMYCIN [Concomitant]
     Active Substance: NEOMYCIN
     Indication: Hepatic cirrhosis
  7. LACTULOSE [Concomitant]
     Active Substance: LACTULOSE
     Indication: Hepatitis chronic active
     Dosage: UNK
     Dates: start: 1977
  8. LACTULOSE [Concomitant]
     Active Substance: LACTULOSE
     Indication: Hepatic cirrhosis

REACTIONS (8)
  - Central nervous system vasculitis [Fatal]
  - Headache [Fatal]
  - Depressed level of consciousness [Fatal]
  - Hemiparesis [Fatal]
  - Hemianopia homonymous [Fatal]
  - Aspergillus infection [Fatal]
  - Cerebral haemorrhage [Fatal]
  - Systemic mycosis [Fatal]

NARRATIVE: CASE EVENT DATE: 19770101
